FAERS Safety Report 25544494 (Version 1)
Quarter: 2025Q3

REPORT INFORMATION
  Report Type: Spontaneous
  Country: CN (occurrence: CN)
  Receive Date: 20250711
  Receipt Date: 20250711
  Transmission Date: 20251020
  Serious: Yes (Hospitalization)
  Sender: COHERUS
  Company Number: CN-SHANGHAI JUNSHI BIOSCIENCES CO., LTD.-CN2025014721

PATIENT

DRUGS (5)
  1. TORIPALIMAB [Suspect]
     Active Substance: TORIPALIMAB
     Indication: Hypopharyngeal cancer
     Dosage: 240 MG, Q3W, DAY 1
     Route: 041
     Dates: start: 20250611, end: 20250611
  2. GEMCITABINE HYDROCHLORIDE [Suspect]
     Active Substance: GEMCITABINE HYDROCHLORIDE
     Indication: Hypopharyngeal cancer
     Dosage: 1.6 G, WEEKLY, DAY 1, DAY 8
     Route: 041
     Dates: start: 20250611, end: 20250619
  3. NEDAPLATIN [Suspect]
     Active Substance: NEDAPLATIN
     Indication: Hypopharyngeal cancer
     Dosage: 40 MG, Q3W, DAY 1-DAY 3
     Route: 041
     Dates: start: 20250611, end: 20250613
  4. SODIUM CHLORIDE [Concomitant]
     Active Substance: SODIUM CHLORIDE
     Indication: Medication dilution
     Dosage: 100 ML, WEEKLY, DAY 1, DAY 8
     Route: 041
     Dates: start: 20250611, end: 20250619
  5. SODIUM CHLORIDE [Concomitant]
     Active Substance: SODIUM CHLORIDE
     Indication: Medication dilution
     Dosage: 500 ML, Q3W, DAY 1-DAY 3
     Route: 041
     Dates: start: 20250611, end: 20250613

REACTIONS (1)
  - Myelosuppression [Recovering/Resolving]

NARRATIVE: CASE EVENT DATE: 20250625
